FAERS Safety Report 10171941 (Version 1)
Quarter: 2014Q2

REPORT INFORMATION
  Report Type: Spontaneous
  Country: AT (occurrence: AT)
  Receive Date: 20140515
  Receipt Date: 20140515
  Transmission Date: 20141212
  Serious: Yes (Hospitalization, Other)
  Sender: FDA-Public Use
  Company Number: AT-PFIZER INC-2014131223

PATIENT
  Age: 54 Year
  Sex: Male

DRUGS (14)
  1. PANTOLOC [Suspect]
     Dosage: 20 MG, 1X/DAY
     Route: 048
  2. TEGRETOL [Suspect]
     Dosage: 200 MG, 1X/DAY
     Route: 048
     Dates: start: 20030808, end: 20030808
  3. TEGRETOL [Suspect]
     Dosage: 1200 MG, 1X/DAY
     Route: 048
     Dates: start: 20030809, end: 20030811
  4. TEGRETOL [Suspect]
     Dosage: 400 MG, 1X/DAY
     Route: 048
     Dates: start: 20030812, end: 20030813
  5. TEGRETOL [Suspect]
     Dosage: 200 MG, 1X/DAY
     Route: 048
     Dates: start: 20030814
  6. ACEMIN [Suspect]
     Dosage: 10 MG, 1X/DAY
     Route: 048
  7. MICROBAMAT [Concomitant]
     Dosage: UNK
     Dates: start: 20030808
  8. SORTIS [Concomitant]
     Dosage: UNK
  9. LAMICTAL [Concomitant]
  10. DOMINAL FORTE [Concomitant]
  11. TRENTAL [Concomitant]
     Dosage: UNK
  12. THROMBO ASS [Concomitant]
     Dosage: UNK
  13. BELOC [Concomitant]
     Dosage: UNK
  14. TRITTICO [Concomitant]

REACTIONS (5)
  - Apathy [Recovered/Resolved]
  - Hyperchloraemia [Recovered/Resolved]
  - Pancreatic enzymes increased [Recovered/Resolved]
  - Hyponatraemia [Recovered/Resolved]
  - Fatigue [Recovered/Resolved]
